FAERS Safety Report 15641144 (Version 1)
Quarter: 2018Q4

REPORT INFORMATION
  Report Type: Report from Study
  Country: US (occurrence: US)
  Receive Date: 20181120
  Receipt Date: 20181120
  Transmission Date: 20190205
  Serious: Yes (Other)
  Sender: FDA-Public Use
  Company Number: US-JAZZ-2018-US-016576

PATIENT
  Sex: Female

DRUGS (23)
  1. XYREM [Suspect]
     Active Substance: SODIUM OXYBATE
     Indication: NARCOLEPSY
     Dosage: 2.25 G, BID
     Route: 048
     Dates: start: 201706, end: 201706
  2. XYREM [Suspect]
     Active Substance: SODIUM OXYBATE
     Indication: CATAPLEXY
     Dosage: DOSE ADJUSTMENT
     Route: 048
     Dates: start: 201706, end: 201706
  3. CITALOPRAM HYDROBROMIDE. [Concomitant]
     Active Substance: CITALOPRAM HYDROBROMIDE
  4. GABAPENTIN. [Concomitant]
     Active Substance: GABAPENTIN
  5. ARMODAFINIL. [Concomitant]
     Active Substance: ARMODAFINIL
  6. MUCINEX [Concomitant]
     Active Substance: GUAIFENESIN
  7. TEMAZEPAM. [Concomitant]
     Active Substance: TEMAZEPAM
  8. ROBITUSSIN COUGH AND CHEST CONGESTION DM [Concomitant]
     Active Substance: DEXTROMETHORPHAN HYDROBROMIDE\GUAIFENESIN
  9. METAXALONE. [Concomitant]
     Active Substance: METAXALONE
  10. BIAXIN [Concomitant]
     Active Substance: CLARITHROMYCIN
  11. CLARITHROMYCIN. [Concomitant]
     Active Substance: CLARITHROMYCIN
  12. ADDERALL [Concomitant]
     Active Substance: AMPHETAMINE ASPARTATE\AMPHETAMINE SULFATE\DEXTROAMPHETAMINE SACCHARATE\DEXTROAMPHETAMINE SULFATE
  13. TRAMADOL HCL [Concomitant]
     Active Substance: TRAMADOL HYDROCHLORIDE
  14. LOSEASONIQUE [Concomitant]
     Active Substance: ETHINYL ESTRADIOL\LEVONORGESTREL
  15. GUAIFENESIN. [Concomitant]
     Active Substance: GUAIFENESIN
  16. ACETAMINOPHEN AND CODEINE [Concomitant]
     Active Substance: ACETAMINOPHEN\CODEINE PHOSPHATE
  17. XYREM [Suspect]
     Active Substance: SODIUM OXYBATE
     Dosage: 4.5 G, BID
     Route: 048
     Dates: start: 201706
  18. LISINOPRIL. [Concomitant]
     Active Substance: LISINOPRIL
  19. LEVAQUIN [Concomitant]
     Active Substance: LEVOFLOXACIN
  20. DIAZEPAM. [Concomitant]
     Active Substance: DIAZEPAM
  21. LAMICTAL [Concomitant]
     Active Substance: LAMOTRIGINE
  22. AMOXICILLIN. [Concomitant]
     Active Substance: AMOXICILLIN
  23. HYDROCODONE BITARTRATE AND ACETAMINOPHEN [Concomitant]
     Active Substance: ACETAMINOPHEN\HYDROCODONE BITARTRATE

REACTIONS (1)
  - Tooth abscess [Unknown]
